FAERS Safety Report 7730819-0 (Version None)
Quarter: 2011Q3

REPORT INFORMATION
  Report Type: 
  Country: None (occurrence: None)
  Receive Date: 20110906
  Receipt Date: 20110825
  Transmission Date: 20111222
  Serious: Yes (Hospitalization, Other)
  Sender: FDA-Public Use
  Company Number: BR-ASTRAZENECA-2011SE50762

PATIENT
  Age: 76 Year
  Sex: Male
  Weight: 80 kg

DRUGS (7)
  1. ATACAND [Suspect]
     Route: 048
     Dates: start: 20060101, end: 20110401
  2. TRAMADOL HYDROCHLORIDE [Concomitant]
     Indication: INFLAMMATION
  3. AMIODARONE HYDROCHLORIDE [Concomitant]
  4. WARFARIN SODIUM [Concomitant]
  5. ATACAND [Suspect]
     Route: 048
     Dates: start: 20110401
  6. SIMVASTATIN [Concomitant]
     Indication: HYPERCHOLESTEROLAEMIA
  7. OMEPRAZOLE [Concomitant]
     Indication: ABDOMINAL DISCOMFORT

REACTIONS (5)
  - TRANSIENT ISCHAEMIC ATTACK [None]
  - SKIN CANCER [None]
  - CEREBROVASCULAR ACCIDENT [None]
  - OEDEMA PERIPHERAL [None]
  - HYPERTENSION [None]
